FAERS Safety Report 7003209-6 (Version None)
Quarter: 2010Q3

REPORT INFORMATION
  Report Type: 
  Country: None (occurrence: None)
  Receive Date: 20100920
  Receipt Date: 20100119
  Transmission Date: 20110219
  Serious: No
  Sender: FDA-Public Use
  Company Number: US-ASTRAZENECA-2009SE17574

PATIENT
  Age: 30 Year
  Sex: Female
  Weight: 129.3 kg

DRUGS (3)
  1. SEROQUEL [Suspect]
     Indication: POST-TRAUMATIC STRESS DISORDER
     Route: 048
     Dates: start: 20060301, end: 20070101
  2. SEROQUEL [Suspect]
     Route: 048
     Dates: start: 20060301, end: 20070601
  3. CELEXA [Concomitant]
     Dates: start: 20060101

REACTIONS (3)
  - GESTATIONAL DIABETES [None]
  - OBESITY [None]
  - TYPE 2 DIABETES MELLITUS [None]
